FAERS Safety Report 9513680 (Version 1)
Quarter: 2013Q1

REPORT INFORMATION
  Report Type: Spontaneous
  Country: US (occurrence: None)
  Receive Date: 20130305
  Receipt Date: 20130305
  Transmission Date: 20140127
  Serious: Yes (Other)
  Sender: FDA-Public Use
  Company Number: 163-21880-12092006

PATIENT
  Age: 65 Year
  Sex: Male
  Weight: 117.94 kg

DRUGS (10)
  1. REVLIMID (LENALIDOMIDE) (25 MILLIGRAM, CAPSULES) [Suspect]
     Indication: PLASMA CELL MYELOMA
     Dosage: 1 IN 28 D
     Route: 048
     Dates: start: 20101230
  2. ACYCLOVIR (ACICLOVIR) (ACICLOVIR) [Concomitant]
  3. ASPIRIN (ACETYLSALICYLIC ACID) [Concomitant]
  4. ATORVASTATIN (ATORVASTATIN) [Concomitant]
  5. CO-Q 10 (UBIDECARENONE) [Concomitant]
  6. LOSARTAN [Concomitant]
  7. OSCAL (CALCIUM CARBONATE) [Concomitant]
  8. OXYCONTIN (OXYCONDONE HYDROCHLORIDE) [Concomitant]
  9. PEPCID (FAMOTIDINE) [Concomitant]
  10. WARFARIN [Concomitant]

REACTIONS (1)
  - Blood cholesterol increased [None]
